FAERS Safety Report 6346707-0 (Version None)
Quarter: 2009Q3

REPORT INFORMATION
  Report Type: 
  Country: None (occurrence: None)
  Receive Date: 20090904
  Receipt Date: 20090904
  Transmission Date: 20100115
  Serious: Yes (Hospitalization)
  Sender: FDA-Public Use
  Company Number: GXKR2009TR09652

PATIENT
  Age: 44 Year
  Sex: Female

DRUGS (3)
  1. CYCLOSPORINE [Suspect]
     Indication: PUSTULAR PSORIASIS
     Dosage: 300 MG/DAY
  2. FLUOXETINE [Suspect]
     Indication: PSYCHIATRIC SYMPTOM
  3. ACITRETIN [Suspect]
     Indication: PUSTULAR PSORIASIS
     Dosage: 35 MG/DAY

REACTIONS (4)
  - DERMATITIS [None]
  - DRUG INTERACTION [None]
  - PSORIASIS [None]
  - PUSTULAR PSORIASIS [None]
